FAERS Safety Report 5689342-X (Version None)
Quarter: 2008Q1

REPORT INFORMATION
  Report Type: 
  Country: None (occurrence: None)
  Receive Date: 20080328
  Receipt Date: 20080319
  Transmission Date: 20080703
  Serious: Yes (Hospitalization)
  Sender: FDA-Public Use
  Company Number: 163-21880-08031338

PATIENT
  Age: 56 Year
  Sex: Female

DRUGS (4)
  1. REVLIMID [Suspect]
     Indication: AMYLOIDOSIS
     Dosage: 15 MG, DAILY 21/28 DAYS, ORAL; 10 MG, DAILY X21 DAYS, ORAL
     Route: 048
     Dates: start: 20071229, end: 20080305
  2. REVLIMID [Suspect]
     Indication: AMYLOIDOSIS
     Dosage: 15 MG, DAILY 21/28 DAYS, ORAL; 10 MG, DAILY X21 DAYS, ORAL
     Route: 048
     Dates: start: 20080321
  3. DEXAMETHASONE TAB [Suspect]
     Indication: DRUG USE FOR UNKNOWN INDICATION
     Dosage: 20 MG, WEEKLY, ORAL
     Route: 048
  4. PREDNISONE TAB [Suspect]
     Indication: DRUG USE FOR UNKNOWN INDICATION
     Dosage: 7.5 MG, DAILY, UNKNOWN

REACTIONS (3)
  - FLUID RETENTION [None]
  - THROMBOCYTOPENIA [None]
  - WEIGHT INCREASED [None]
